FAERS Safety Report 5046136-6 (Version None)
Quarter: 2006Q2

REPORT INFORMATION
  Report Type: 
  Country: None (occurrence: None)
  Receive Date: 20060629
  Receipt Date: 20060614
  Transmission Date: 20061013
  Serious: Yes (Hospitalization, Other)
  Sender: FDA-Public Use
  Company Number: 2006BI004443

PATIENT
  Age: 50 Year
  Sex: Male
  Weight: 62.1428 kg

DRUGS (11)
  1. AVONEX [Suspect]
     Indication: MULTIPLE SCLEROSIS
     Dosage: IM
     Route: 030
  2. SODIUM BICARBONATE [Concomitant]
  3. VIT B12 [Concomitant]
  4. CALCIUM GLUCONATE [Concomitant]
  5. PENTASA [Concomitant]
  6. M.V.I. [Concomitant]
  7. CALCITRIOL [Concomitant]
  8. FESO4 [Concomitant]
  9. TOPROL-XL [Concomitant]
  10. PREDNISONE [Concomitant]
  11. PRILOSEC [Concomitant]

REACTIONS (9)
  - ARTHRALGIA [None]
  - BLINDNESS [None]
  - CONVULSION [None]
  - DEHYDRATION [None]
  - HYPERTENSION [None]
  - INCOHERENT [None]
  - METABOLIC ENCEPHALOPATHY [None]
  - RENAL FAILURE ACUTE [None]
  - WEIGHT DECREASED [None]
